FAERS Safety Report 9699878 (Version 3)
Quarter: 2013Q4

REPORT INFORMATION
  Report Type: Report from Study
  Country: CA (occurrence: CA)
  Receive Date: 20131121
  Receipt Date: 20131231
  Transmission Date: 20140711
  Serious: Yes (Other)
  Sender: FDA-Public Use
  Company Number: CA-ROCHE-1306595

PATIENT
  Age: 63 Year
  Sex: Male
  Weight: 97 kg

DRUGS (12)
  1. RITUXAN [Suspect]
     Indication: MYOSITIS
     Dosage: DAY 1 AND DAY 15
     Route: 042
     Dates: start: 20100811
  2. METHOTREXATE [Suspect]
     Indication: PRODUCT USED FOR UNKNOWN INDICATION
     Route: 065
  3. DIPHENHYDRAMINE HCL [Concomitant]
     Indication: PREMEDICATION
     Route: 048
     Dates: start: 20100811
  4. ACETAMINOPHEN [Concomitant]
     Indication: PREMEDICATION
     Route: 048
     Dates: start: 20100811
  5. METHYLPREDNISOLONE [Concomitant]
     Indication: PREMEDICATION
     Route: 042
     Dates: start: 20100811
  6. EZETROL [Concomitant]
  7. FISH OIL [Concomitant]
  8. ASPIRIN [Concomitant]
     Route: 065
  9. BISOPROLOL [Concomitant]
  10. LORAZEPAM [Concomitant]
  11. RAMIPRIL [Concomitant]
  12. NORVASC [Concomitant]
     Route: 065

REACTIONS (5)
  - Hepatic cirrhosis [Unknown]
  - Off label use [Unknown]
  - Nasopharyngitis [Recovering/Resolving]
  - Gout [Recovering/Resolving]
  - Blood pressure increased [Recovering/Resolving]
